FAERS Safety Report 16885894 (Version 5)
Quarter: 2020Q1

REPORT INFORMATION
  Report Type: Spontaneous
  Country: US (occurrence: US)
  Receive Date: 20191004
  Receipt Date: 20200324
  Transmission Date: 20200409
  Serious: Yes (Other)
  Sender: FDA-Public Use
  Company Number: US-ACTELION-A-NJ2019-194783

PATIENT
  Sex: Female
  Weight: 59.86 kg

DRUGS (1)
  1. OPSUMIT [Suspect]
     Active Substance: MACITENTAN
     Indication: PULMONARY ARTERIAL HYPERTENSION
     Dosage: 10 MG, QD
     Route: 048
     Dates: start: 20190513

REACTIONS (6)
  - Biopsy [Unknown]
  - Influenza [Unknown]
  - Fluid retention [Recovered/Resolved]
  - Tooth infection [Unknown]
  - Red blood cell count decreased [Unknown]
  - Oedema [Unknown]
